FAERS Safety Report 7141612-4 (Version None)
Quarter: 2010Q4

REPORT INFORMATION
  Report Type: 
  Country: None (occurrence: None)
  Receive Date: 20101117
  Receipt Date: 20100914
  Transmission Date: 20110411
  Serious: Yes (Other)
  Sender: FDA-Public Use
  Company Number: SOLV00210005606

PATIENT
  Age: 76 Year
  Sex: Female
  Weight: 43.181 kg

DRUGS (7)
  1. CREON [Suspect]
     Indication: PANCREATICODUODENECTOMY
     Dosage: 3 WITH MEALS, 1 WITH SNACKS
     Dates: start: 20100801, end: 20100923
  2. OTC NSAID (OTC NSAID) [Suspect]
     Indication: PRODUCT USED FOR UNKNOWN INDICATION
     Dosage: UNKNOWN DAILY DOSE
  3. FAMOTIDINE [Concomitant]
  4. CHOLESTYRAMINE (COLESTYRAMINE) [Concomitant]
  5. LEVOTHYROXINE SODIUM [Concomitant]
  6. BONIVA [Concomitant]
  7. DRISDOL [Concomitant]

REACTIONS (5)
  - ABDOMINAL PAIN [None]
  - DIZZINESS [None]
  - DYSPNOEA [None]
  - FLATULENCE [None]
  - GASTROINTESTINAL HAEMORRHAGE [None]
